FAERS Safety Report 9691100 (Version 1)
Quarter: 2013Q4

REPORT INFORMATION
  Report Type: Report from Study
  Country: US (occurrence: US)
  Receive Date: 20131115
  Receipt Date: 20131115
  Transmission Date: 20140711
  Serious: Yes (Death)
  Sender: FDA-Public Use
  Company Number: US-SA-2013SA117034

PATIENT
  Sex: 0

DRUGS (2)
  1. DAUNORUBICIN [Suspect]
     Indication: ACUTE MYELOID LEUKAEMIA
     Dosage: OVER 5 MIN
     Route: 042
  2. CLOFARABINE [Suspect]
     Indication: ACUTE MYELOID LEUKAEMIA
     Dosage: ADMINISTERED AS 1 HOUR INFUSION
     Route: 042

REACTIONS (1)
  - Toxicity to various agents [Fatal]
